FAERS Safety Report 20728796 (Version 1)
Quarter: 2022Q2

REPORT INFORMATION
  Report Type: Spontaneous
  Country: US (occurrence: US)
  Receive Date: 20220420
  Receipt Date: 20220420
  Transmission Date: 20220721
  Serious: Yes (Other)
  Sender: FDA-Public Use
  Company Number: US-SA-SAC20220418000700

PATIENT
  Sex: Female

DRUGS (2)
  1. ZANTAC [Suspect]
     Active Substance: RANITIDINE HYDROCHLORIDE
     Dosage: UNK
     Dates: start: 201401, end: 201912
  2. RANITIDINE [Concomitant]
     Active Substance: RANITIDINE

REACTIONS (6)
  - Bladder cancer [Unknown]
  - Emotional distress [Unknown]
  - Pain [Unknown]
  - Anxiety [Unknown]
  - Deformity [Unknown]
  - Injury [Unknown]

NARRATIVE: CASE EVENT DATE: 20180101
